FAERS Safety Report 4487803-2 (Version None)
Quarter: 2004Q4

REPORT INFORMATION
  Report Type: 
  Country: None (occurrence: None)
  Receive Date: 20041027
  Receipt Date: 20041027
  Transmission Date: 20050328
  Serious: No
  Sender: FDA-Public Use
  Company Number: None

PATIENT
  Sex: Female
  Weight: 154.6766 kg

DRUGS (1)
  1. LOTENSIN HCT [Suspect]
     Indication: HYPERTENSION
     Dosage: 20/12.5  1/2 QD PO
     Route: 048
     Dates: start: 20021201

REACTIONS (1)
  - HEADACHE [None]
